FAERS Safety Report 5926656-X (Version None)
Quarter: 2008Q4

REPORT INFORMATION
  Report Type: 
  Country: None (occurrence: None)
  Receive Date: 20081017
  Receipt Date: 20081002
  Transmission Date: 20090506
  Serious: Yes (Hospitalization)
  Sender: FDA-Public Use
  Company Number: 2008S1017995

PATIENT
  Age: 34 Year
  Sex: Male

DRUGS (2)
  1. CLOZAPINE [Suspect]
     Indication: DRUG USE FOR UNKNOWN INDICATION
     Dosage: 125 MG;DAILY
  2. CLOZAPINE [Concomitant]

REACTIONS (3)
  - GASTROINTESTINAL PAIN [None]
  - MALAISE [None]
  - PANCREATITIS [None]
